FAERS Safety Report 14149525 (Version 2)
Quarter: 2017Q4

REPORT INFORMATION
  Report Type: Report from Study
  Country: US (occurrence: US)
  Receive Date: 20171101
  Receipt Date: 20171221
  Transmission Date: 20180321
  Serious: Yes (Hospitalization)
  Sender: FDA-Public Use
  Company Number: PHEH2017US035204

PATIENT
  Sex: Female

DRUGS (1)
  1. PROMACTA [Suspect]
     Active Substance: ELTROMBOPAG OLAMINE
     Indication: IRON DEFICIENCY ANAEMIA
     Dosage: 37.5 MG, TID
     Route: 048

REACTIONS (4)
  - Hair growth abnormal [Unknown]
  - Product use in unapproved indication [Unknown]
  - Tendonitis [Not Recovered/Not Resolved]
  - Therapeutic response delayed [Unknown]
